FAERS Safety Report 8306350-0 (Version None)
Quarter: 2012Q2

REPORT INFORMATION
  Report Type: 
  Country: None (occurrence: None)
  Receive Date: 20120423
  Receipt Date: 20120319
  Transmission Date: 20120825
  Serious: Yes (Other)
  Sender: FDA-Public Use
  Company Number: FR-BAXTER-2012BAX000495

PATIENT
  Age: 27 Year
  Sex: Female

DRUGS (8)
  1. ONDANSETRON [Concomitant]
     Indication: PROPHYLAXIS OF NAUSEA AND VOMITING
     Route: 042
  2. DOXORUBICIN HCL [Suspect]
     Indication: EWING'S SARCOMA
     Route: 042
  3. METOCLOPRAMIDE [Concomitant]
     Indication: PROPHYLAXIS OF NAUSEA AND VOMITING
     Route: 042
  4. IFOSFAMIDE [Suspect]
     Dosage: 9 G/M2
     Route: 042
  5. NEUPOGEN [Concomitant]
     Indication: PROPHYLAXIS
  6. IFOSFAMIDE [Suspect]
     Indication: EWING'S SARCOMA
     Route: 042
  7. DOXORUBICIN HCL [Suspect]
     Route: 042
  8. UROMITEXAN 5 G/50 ML, SOLUTION INJECTABLE POUR PERFUSION EN FLACON [Concomitant]
     Indication: PROPHYLAXIS

REACTIONS (4)
  - PREMATURE DELIVERY [None]
  - NEUTROPENIA [None]
  - ALOPECIA [None]
  - MATERNAL EXPOSURE DURING PREGNANCY [None]
